FAERS Safety Report 24554089 (Version 1)
Quarter: 2024Q4

REPORT INFORMATION
  Report Type: Spontaneous
  Country: US (occurrence: None)
  Receive Date: 20241028
  Receipt Date: 20241028
  Transmission Date: 20250114
  Serious: No
  Sender: ENCUBE ETHICALS
  Company Number: US-Encube-001387

PATIENT
  Age: 79 Year
  Sex: Female

DRUGS (2)
  1. PERMETHRIN [Suspect]
     Active Substance: PERMETHRIN
     Indication: Pruritus
     Dosage: USED ONCE IN THE TODAY MORNING
     Dates: start: 20241014
  2. PERMETHRIN [Suspect]
     Active Substance: PERMETHRIN
     Indication: Scratch
     Dosage: USED ONCE IN THE TODAY MORNING
     Dates: start: 20241014

REACTIONS (3)
  - Condition aggravated [Not Recovered/Not Resolved]
  - Pruritus [Not Recovered/Not Resolved]
  - Scratch [Not Recovered/Not Resolved]

NARRATIVE: CASE EVENT DATE: 20241014
